FAERS Safety Report 9989464 (Version 1)
Quarter: 2014Q1

REPORT INFORMATION
  Report Type: Report from Study
  Country: US (occurrence: US)
  Receive Date: 20140310
  Receipt Date: 20140310
  Transmission Date: 20141002
  Serious: No
  Sender: FDA-Public Use
  Company Number: US-ABBVIE-13P-163-1129013-00

PATIENT
  Age: 44 Year
  Sex: Female

DRUGS (14)
  1. HUMIRA [Suspect]
     Indication: CROHN^S DISEASE
     Dates: start: 20130329
  2. GABAPENTIN [Suspect]
     Indication: OSTEOARTHRITIS
     Dates: start: 20130701
  3. GABAPENTIN [Suspect]
     Indication: FIBROMYALGIA
  4. GABAPENTIN [Suspect]
     Indication: DIABETIC NEUROPATHY
  5. HUMALOG MIX [Concomitant]
     Indication: TYPE 2 DIABETES MELLITUS
     Dosage: 54 UNITS IN THE AM AND 50 UNITS BEFORE DINNER
  6. LOSARTAN / HYDROCHLOROTHIAZID STADA [Concomitant]
     Indication: HYPERTENSION
     Dosage: 50/12.5MG
  7. FOLIC ACID [Concomitant]
     Indication: ANAEMIA
  8. ZYRTEC [Concomitant]
     Indication: SEASONAL ALLERGY
  9. FLONASE [Concomitant]
     Indication: SEASONAL ALLERGY
     Dosage: (X1) SPRAY BILATERAL
     Route: 045
  10. LOPERAMIDE [Concomitant]
     Indication: DIARRHOEA
     Dosage: AS NEEDED
  11. XOLAIR [Concomitant]
     Indication: ASTHMA
     Route: 050
  12. ADVAIR [Concomitant]
     Indication: ASTHMA
     Dosage: INHALER 230/21MG
  13. TRAVATAN [Concomitant]
     Indication: GLAUCOMA
     Dosage: BILATERAL EYES, AM
     Route: 047
  14. SIMVASTATIN [Concomitant]
     Indication: BLOOD CHOLESTEROL INCREASED

REACTIONS (5)
  - Sluggishness [Recovering/Resolving]
  - Aphonia [Recovering/Resolving]
  - Pain [Not Recovered/Not Resolved]
  - Miliaria [Recovering/Resolving]
  - Nasopharyngitis [Recovering/Resolving]
